FAERS Safety Report 5690463-6 (Version None)
Quarter: 2008Q1

REPORT INFORMATION
  Report Type: 
  Country: None (occurrence: None)
  Receive Date: 20080331
  Receipt Date: 20080331
  Transmission Date: 20080703
  Serious: No
  Sender: FDA-Public Use
  Company Number: None

PATIENT
  Age: 4 Year
  Sex: Male
  Weight: 18.1439 kg

DRUGS (1)
  1. SINGULAIR [Suspect]
     Indication: MULTIPLE ALLERGIES
     Dosage: 4 MG  1 TAB/DAY  OROPHARINGE
     Route: 049
     Dates: start: 20070802, end: 20080328

REACTIONS (7)
  - ABNORMAL BEHAVIOUR [None]
  - ANGER [None]
  - DECREASED APPETITE [None]
  - DEPRESSED MOOD [None]
  - INITIAL INSOMNIA [None]
  - MOOD SWINGS [None]
  - MUSCLE SPASMS [None]
